FAERS Safety Report 8973839 (Version 3)
Quarter: 2013Q1

REPORT INFORMATION
  Report Type: Spontaneous
  Country: US (occurrence: US)
  Receive Date: 20121219
  Receipt Date: 20130107
  Transmission Date: 20140127
  Serious: Yes (Other)
  Sender: FDA-Public Use
  Company Number: US-JNJFOC-20121206038

PATIENT
  Age: 34 Year
  Sex: Female

DRUGS (13)
  1. IBUPROFEN [Suspect]
     Indication: MUSCULOSKELETAL CHEST PAIN
     Route: 065
  2. CITALOPRAM [Interacting]
     Indication: ANXIETY
     Route: 065
  3. CITALOPRAM [Interacting]
     Indication: ANXIETY
     Route: 065
  4. OXAPROZIN [Interacting]
     Indication: BURSITIS
     Route: 065
  5. NAPROXEN [Interacting]
     Indication: MUSCULOSKELETAL CHEST PAIN
     Route: 065
  6. LORAZEPAM [Interacting]
     Indication: PRODUCT USED FOR UNKNOWN INDICATION
     Route: 065
  7. HYDROXYZINE PAMOATE [Interacting]
     Indication: PRODUCT USED FOR UNKNOWN INDICATION
     Dosage: 50-100MG AT BEDTIME
     Route: 065
  8. ALBUTEROL [Interacting]
     Indication: WHEEZING
     Dosage: 2 PUFFS EVERY 4-6 HOURS AS NEEDED
     Route: 065
  9. ALBUTEROL [Interacting]
     Indication: COUGH
     Dosage: 2 PUFFS EVERY 4-6 HOURS AS NEEDED
     Route: 065
  10. ESTRADIOL [Interacting]
     Indication: PRODUCT USED FOR UNKNOWN INDICATION
     Route: 065
  11. METHOCARBAMOL [Interacting]
     Indication: PRODUCT USED FOR UNKNOWN INDICATION
     Dosage: 500-1000MG 4 TIMES DAILY AS NEEDED
     Route: 065
  12. ACETAMINOPHEN [Concomitant]
     Route: 065
  13. BUSPIRONE [Concomitant]
     Route: 065

REACTIONS (4)
  - Increased tendency to bruise [Recovering/Resolving]
  - Drug interaction [Unknown]
  - Impaired healing [Unknown]
  - Musculoskeletal chest pain [None]
